FAERS Safety Report 4918839-2 (Version None)
Quarter: 2006Q1

REPORT INFORMATION
  Report Type: 
  Country: None (occurrence: None)
  Receive Date: 20060221
  Receipt Date: 20060221
  Transmission Date: 20060701
  Serious: Yes (Life-Threatening, Hospitalization)
  Sender: FDA-Public Use
  Company Number: None

PATIENT
  Age: 45 Year
  Sex: Female

DRUGS (3)
  1. PROCHLORPERAZINE [Suspect]
     Dosage: 10MG  ONCE  PO
     Route: 048
     Dates: start: 20041209, end: 20041209
  2. PANTOPRAZOLE [Concomitant]
  3. IMATINIB [Concomitant]

REACTIONS (5)
  - DYSPNOEA [None]
  - LEUKOCYTOSIS [None]
  - SIMILAR REACTION ON PREVIOUS EXPOSURE TO DRUG [None]
  - SWELLING FACE [None]
  - SWOLLEN TONGUE [None]
